FAERS Safety Report 5522520-9 (Version None)
Quarter: 2007Q4

REPORT INFORMATION
  Report Type: 
  Country: None (occurrence: None)
  Receive Date: 20071120
  Receipt Date: 20071109
  Transmission Date: 20080405
  Serious: Yes (Hospitalization, Other)
  Sender: FDA-Public Use
  Company Number: AU-PFIZER INC-2007078954

PATIENT
  Sex: Male
  Weight: 75 kg

DRUGS (5)
  1. SUTENT [Suspect]
     Route: 048
     Dates: start: 20070719, end: 20070816
  2. PARACETAMOL [Concomitant]
  3. SIMVASTATIN [Concomitant]
  4. SPIRIVA [Concomitant]
  5. OXAZEPAM [Concomitant]

REACTIONS (8)
  - ANOREXIA [None]
  - ASTHENIA [None]
  - DEHYDRATION [None]
  - DIARRHOEA [None]
  - DRUG INTOLERANCE [None]
  - MOBILITY DECREASED [None]
  - MUCOSAL INFLAMMATION [None]
  - RENAL FAILURE ACUTE [None]
